FAERS Safety Report 19945997 (Version 1)
Quarter: 2021Q4

REPORT INFORMATION
  Report Type: Spontaneous
  Country: None (occurrence: US)
  Receive Date: 20211012
  Receipt Date: 20211012
  Transmission Date: 20220303
  Serious: Yes (Other)
  Sender: FDA-Public Use
  Company Number: US-ACELLA PHARMACEUTICALS, LLC-2120447

PATIENT
  Age: 51 Year
  Sex: Female
  Weight: 72 kg

DRUGS (12)
  1. PHENYTOIN SODIUM [Suspect]
     Active Substance: PHENYTOIN SODIUM
     Indication: Seizure
     Route: 048
  2. PHENYTOIN [Suspect]
     Active Substance: PHENYTOIN
     Route: 042
  3. PHENYTOIN [Suspect]
     Active Substance: PHENYTOIN
     Route: 040
  4. PHENYTOIN [Suspect]
     Active Substance: PHENYTOIN
     Route: 048
  5. CEFTRIAXONE [Concomitant]
     Active Substance: CEFTRIAXONE
     Route: 065
  6. GENTAMICIN [Concomitant]
     Active Substance: GENTAMICIN
     Route: 065
  7. DIAZEPAM [Concomitant]
     Active Substance: DIAZEPAM
     Route: 065
  8. DIAZEPAM [Concomitant]
     Active Substance: DIAZEPAM
     Route: 048
  9. VALPROATE SODIUM [Concomitant]
     Active Substance: VALPROATE SODIUM
     Route: 048
  10. VITAMIN B12 [Concomitant]
     Active Substance: CYANOCOBALAMIN
     Route: 030
  11. RANITIDINE [Concomitant]
     Active Substance: RANITIDINE
     Route: 065
  12. dextrose normal saline [Concomitant]
     Route: 042

REACTIONS (7)
  - Seizure [Unknown]
  - Blood disorder [Unknown]
  - Hypotension [Unknown]
  - Dizziness [Unknown]
  - Partial seizures [Unknown]
  - Infection [Unknown]
  - Toxicity to various agents [Unknown]
